FAERS Safety Report 5381313-6 (Version None)
Quarter: 2007Q2

REPORT INFORMATION
  Report Type: 
  Country: None (occurrence: None)
  Receive Date: 20070629
  Receipt Date: 20070117
  Transmission Date: 20071010
  Serious: Yes (Hospitalization)
  Sender: FDA-Public Use
  Company Number: VISP-PR-0701S-0021

PATIENT
  Age: 72 Year
  Sex: Female

DRUGS (1)
  1. VISIPAQUE [Suspect]
     Indication: PULMONARY EMBOLISM
     Dosage: 150 ML, SINGLE DOSE, IV
     Route: 042
     Dates: start: 20070115, end: 20070115

REACTIONS (7)
  - ASTHENIA [None]
  - BLOOD CREATININE INCREASED [None]
  - BLOOD PRESSURE DECREASED [None]
  - CHEST PAIN [None]
  - DIARRHOEA [None]
  - NAUSEA [None]
  - VOMITING [None]
